FAERS Safety Report 5804956-1 (Version None)
Quarter: 2008Q3

REPORT INFORMATION
  Report Type: 
  Country: None (occurrence: None)
  Receive Date: 20080709
  Receipt Date: 20080627
  Transmission Date: 20090109
  Serious: Yes (Hospitalization)
  Sender: FDA-Public Use
  Company Number: US-PFIZER INC-2008053925

PATIENT
  Sex: Male
  Weight: 94 kg

DRUGS (8)
  1. SUTENT [Suspect]
     Indication: METASTATIC RENAL CELL CARCINOMA
     Route: 048
  2. ACETYLSALICYLIC ACID SRT [Concomitant]
     Route: 048
  3. LIPITOR [Concomitant]
     Route: 048
  4. TOPROL-XL [Concomitant]
     Route: 048
  5. PLAVIX [Concomitant]
     Route: 048
  6. ZETIA [Concomitant]
     Route: 048
  7. CALCIUM [Concomitant]
     Route: 048
  8. VITAMIN D [Concomitant]
     Route: 048

REACTIONS (2)
  - HYPOTENSION [None]
  - SYNCOPE [None]
